FAERS Safety Report 8762627 (Version 1)
Quarter: 2012Q4

REPORT INFORMATION
  Report Type: 
  Country: CN (occurrence: CN)
  Receive Date: 20120830
  Receipt Date: 20120830
  Transmission Date: 20130627
  Serious: Yes (Other)
  Sender: FDA-Public Use
  Company Number: CN-ROCHE-1111424

PATIENT
  Sex: Female
  Weight: 50 kg

DRUGS (2)
  1. CELLCEPT [Suspect]
     Indication: RENAL TRANSPLANT
     Dates: start: 20090707, end: 20090710
  2. GANCICLOVIR [Suspect]
     Indication: VIRAL INFECTION
     Route: 041
     Dates: start: 20090626, end: 20090710

REACTIONS (2)
  - Full blood count decreased [Recovering/Resolving]
  - Agranulocytosis [Recovering/Resolving]
